FAERS Safety Report 10599242 (Version 1)
Quarter: 2014Q4

REPORT INFORMATION
  Report Type: Spontaneous
  Country: US (occurrence: US)
  Receive Date: 20141121
  Receipt Date: 20141121
  Transmission Date: 20150529
  Serious: Yes (Hospitalization, Other)
  Sender: FDA-Public Use
  Company Number: US-PFIZER INC-2014316845

PATIENT
  Age: 52 Year
  Sex: Female

DRUGS (1)
  1. PRISTIQ EXTENDED RELEASE [Suspect]
     Active Substance: DESVENLAFAXINE SUCCINATE
     Indication: DEPRESSION
     Dosage: 50 MG, 1X/DAY

REACTIONS (11)
  - Disease progression [Unknown]
  - Diarrhoea [Unknown]
  - Weight fluctuation [Unknown]
  - Blood electrolytes decreased [Unknown]
  - Colon cancer [Unknown]
  - Loss of consciousness [Unknown]
  - Malaise [Unknown]
  - Ventricular tachycardia [Unknown]
  - Memory impairment [Unknown]
  - Dehydration [Unknown]
  - Cerebrovascular accident [Unknown]

NARRATIVE: CASE EVENT DATE: 2013
